FAERS Safety Report 4956382-5 (Version None)
Quarter: 2006Q1

REPORT INFORMATION
  Report Type: 
  Country: None (occurrence: None)
  Receive Date: 20060323
  Receipt Date: 20060310
  Transmission Date: 20060701
  Serious: Yes (Life-Threatening, Hospitalization)
  Sender: FDA-Public Use
  Company Number: 2006035534

PATIENT
  Age: 85 Year
  Sex: Male

DRUGS (5)
  1. ALDACTONE [Suspect]
     Indication: ILL-DEFINED DISORDER
     Dosage: 25 MG (25 MG, DAILY), ORAL
     Route: 048
     Dates: start: 20050101, end: 20060208
  2. ACUITEL (QUINAPRIL HYDROCHLORIDE) [Suspect]
     Indication: ILL-DEFINED DISORDER
     Dosage: 20 MG (20 MG, DAILY), ORAL
     Route: 048
     Dates: start: 20050101, end: 20060208
  3. TICLID [Concomitant]
  4. TRINIPATCH (GLYCERYL TRINITRATE) [Concomitant]
  5. CRESTOR [Concomitant]

REACTIONS (7)
  - ATRIOVENTRICULAR BLOCK COMPLETE [None]
  - DEHYDRATION [None]
  - FALL [None]
  - GASTROENTERITIS [None]
  - LIVER DISORDER [None]
  - MYOCARDIAL ISCHAEMIA [None]
  - RENAL FAILURE [None]
